FAERS Safety Report 25902951 (Version 1)
Quarter: 2025Q4

REPORT INFORMATION
  Report Type: Spontaneous
  Country: US (occurrence: US)
  Receive Date: 20251009
  Receipt Date: 20251009
  Transmission Date: 20260117
  Serious: No
  Sender: ABBVIE
  Company Number: US-ABBVIE-6486550

PATIENT
  Age: 72 Year
  Sex: Male

DRUGS (1)
  1. DURYSTA [Suspect]
     Active Substance: BIMATOPROST
     Indication: Glaucoma
     Dosage: TIME INTERVAL: AS NECESSARY: ROA: OPHTHALMIC, FORM STRENGTH: 0.01 MICROGRAM
     Route: 050
     Dates: start: 202505, end: 202505

REACTIONS (2)
  - Cystoid macular oedema [Not Recovered/Not Resolved]
  - Vision blurred [Unknown]

NARRATIVE: CASE EVENT DATE: 20250101
